FAERS Safety Report 8923815 (Version 1)
Quarter: 2012Q4

REPORT INFORMATION
  Report Type: 
  Country: US (occurrence: US)
  Receive Date: 20121126
  Receipt Date: 20121126
  Transmission Date: 20130627
  Serious: Yes (Hospitalization)
  Sender: FDA-Public Use
  Company Number: US-B.I. PHARMACEUTICALS,INC./RIDGEFIELD-2012-BI-00822BP

PATIENT
  Age: 71 Year
  Sex: Female

DRUGS (11)
  1. PRADAXA [Suspect]
     Indication: ATRIAL FIBRILLATION
     Dosage: 300 mg
     Route: 048
     Dates: end: 20121109
  2. CARTIA XT [Concomitant]
     Indication: HYPERTENSION
     Dosage: 360 mg
     Route: 048
  3. CARTIA XT [Concomitant]
     Indication: ATRIAL FIBRILLATION
  4. NEURONTIN [Concomitant]
     Indication: BIPOLAR DISORDER
     Dosage: 1200 mg
     Route: 048
  5. LIPITOR [Concomitant]
     Indication: HYPERLIPIDAEMIA
     Dosage: 20 mg
     Route: 048
  6. LAMICTAL [Concomitant]
     Indication: BIPOLAR DISORDER
     Dosage: 100 mg
     Route: 048
  7. NEXIUM [Concomitant]
     Indication: GASTROOESOPHAGEAL REFLUX DISEASE
     Dosage: 40 mg
     Route: 048
  8. DESIPRAMINE [Concomitant]
     Indication: DEPRESSION
     Dosage: 200 mg
     Route: 048
  9. DESIPRAMINE [Concomitant]
     Indication: BIPOLAR DISORDER
  10. METOPROLOL TARTRATE [Concomitant]
     Indication: HYPERTENSION
     Dosage: 50 mg
     Route: 048
     Dates: end: 20121109
  11. METOPROLOL TARTRATE [Concomitant]
     Indication: ATRIAL FIBRILLATION

REACTIONS (5)
  - Splenic infarction [Recovered/Resolved]
  - Hypophagia [Recovered/Resolved]
  - Fluid intake reduced [Recovered/Resolved]
  - Hypotension [Recovered/Resolved]
  - Syncope [Recovered/Resolved]
